FAERS Safety Report 11947731 (Version 1)
Quarter: 2016Q1

REPORT INFORMATION
  Report Type: Spontaneous
  Country: US (occurrence: US)
  Receive Date: 20160125
  Receipt Date: 20160125
  Transmission Date: 20160526
  Serious: No
  Sender: FDA-Public Use
  Company Number: US-TEVA-627640USA

PATIENT
  Age: 4 Year
  Sex: Female
  Weight: 23.61 kg

DRUGS (2)
  1. QVAR [Suspect]
     Active Substance: BECLOMETHASONE DIPROPIONATE
     Indication: PNEUMONIA
     Dates: start: 20151217
  2. XOPENEX [Concomitant]
     Active Substance: LEVALBUTEROL HYDROCHLORIDE
     Indication: PNEUMONIA
     Dates: start: 20151207, end: 20151221

REACTIONS (5)
  - Nervous system disorder [Unknown]
  - Excessive eye blinking [Unknown]
  - Feeling abnormal [Unknown]
  - Off label use [Unknown]
  - Psychomotor hyperactivity [Unknown]

NARRATIVE: CASE EVENT DATE: 20151217
